FAERS Safety Report 18209611 (Version 1)
Quarter: 2020Q3

REPORT INFORMATION
  Report Type: Not Available
  Country: US (occurrence: US)
  Receive Date: 20200828
  Receipt Date: 20200828
  Transmission Date: 20201103
  Serious: No
  Sender: FDA-Public Use
  Company Number: US-NEUROCRINE BIOSCIENCES INC.-2020NBI03039

PATIENT
  Age: 67 Year
  Sex: Female

DRUGS (2)
  1. INGREZZA [Suspect]
     Active Substance: VALBENAZINE
     Indication: TARDIVE DYSKINESIA
     Route: 048
     Dates: start: 20190815, end: 20190822
  2. INGREZZA [Suspect]
     Active Substance: VALBENAZINE
     Route: 048
     Dates: start: 20190822, end: 20200810

REACTIONS (9)
  - Bruxism [Unknown]
  - Tremor [Unknown]
  - Vision blurred [Unknown]
  - Balance disorder [Unknown]
  - Fall [Unknown]
  - Dyskinesia [Unknown]
  - Tongue disorder [Unknown]
  - Skin laceration [Unknown]
  - Dry mouth [Unknown]
